FAERS Safety Report 16033428 (Version 1)
Quarter: 2019Q1

REPORT INFORMATION
  Report Type: Spontaneous
  Country: CN (occurrence: CN)
  Receive Date: 20190305
  Receipt Date: 20190305
  Transmission Date: 20190418
  Serious: Yes (Other)
  Sender: FDA-Public Use
  Company Number: CN-SA-2019SA056281

PATIENT
  Age: 62 Year
  Sex: Male
  Weight: 45 kg

DRUGS (2)
  1. GLUCOSE INJECTION [Concomitant]
     Active Substance: DEXTROSE
     Indication: SOLVENT SENSITIVITY
     Dosage: 250 ML, QD
     Route: 041
     Dates: start: 20190122, end: 20190122
  2. ELOXATIN [Suspect]
     Active Substance: OXALIPLATIN
     Indication: CHEMOTHERAPY
     Dosage: 115 ML, QD
     Route: 041
     Dates: start: 20190122, end: 20190122

REACTIONS (3)
  - Pruritus [Recovering/Resolving]
  - Laryngeal discomfort [Recovering/Resolving]
  - Rash [Recovering/Resolving]

NARRATIVE: CASE EVENT DATE: 20190122
